FAERS Safety Report 7722183-8 (Version None)
Quarter: 2011Q3

REPORT INFORMATION
  Report Type: 
  Country: None (occurrence: None)
  Receive Date: 20110831
  Receipt Date: 20110829
  Transmission Date: 20111222
  Serious: Yes (Other)
  Sender: FDA-Public Use
  Company Number: CHPA2011US11624

PATIENT
  Sex: Female

DRUGS (2)
  1. VOLTAREN [Suspect]
     Indication: ARTHRALGIA
     Dosage: UNK, ONCE
     Route: 061
  2. DRUG THERAPY NOS [Concomitant]
     Indication: ARTHRALGIA

REACTIONS (7)
  - INTRACRANIAL ANEURYSM [None]
  - WRONG TECHNIQUE IN DRUG USAGE PROCESS [None]
  - OFF LABEL USE [None]
  - DISEASE RECURRENCE [None]
  - DRUG ADMINISTERED AT INAPPROPRIATE SITE [None]
  - DIZZINESS [None]
  - ANEURYSM REPAIR [None]
